FAERS Safety Report 4765000-0 (Version None)
Quarter: 2005Q3

REPORT INFORMATION
  Report Type: 
  Country: None (occurrence: None)
  Receive Date: 20050907
  Receipt Date: 20050829
  Transmission Date: 20060218
  Serious: Yes (Other)
  Sender: FDA-Public Use
  Company Number: 2005094374

PATIENT
  Sex: Female

DRUGS (3)
  1. NORVASC [Suspect]
     Indication: HYPERTENSION
  2. COREG [Concomitant]
  3. DIOVAN HCT [Concomitant]

REACTIONS (1)
  - CARDIAC OPERATION [None]
